FAERS Safety Report 10381772 (Version 1)
Quarter: 2014Q3

REPORT INFORMATION
  Report Type: Spontaneous
  Country: CA (occurrence: None)
  Receive Date: 20140804
  Receipt Date: 20140804
  Transmission Date: 20150326
  Serious: Yes (Hospitalization)
  Sender: FDA-Public Use
  Company Number: CA-016589

PATIENT
  Age: 36 Year
  Sex: Female

DRUGS (2)
  1. MENOPUR [Suspect]
     Active Substance: FOLLICLE STIMULATING HORMONE BETA POLYPEPTIDE\LUTROPIN ALFA
     Indication: IN VITRO FERTILISATION
     Dates: start: 20140625
  2. GONAL-F [Concomitant]
     Active Substance: FOLLITROPIN

REACTIONS (4)
  - Anxiety [None]
  - Paraesthesia [None]
  - Injection site reaction [None]
  - Hypertension [None]
